FAERS Safety Report 8565213 (Version 4)
Quarter: 2013Q2

REPORT INFORMATION
  Report Type: Report from Study
  Country: MX (occurrence: MX)
  Receive Date: 20120516
  Receipt Date: 20130507
  Transmission Date: 20140414
  Serious: Yes (Other)
  Sender: FDA-Public Use
  Company Number: PHHY2012MX040076

PATIENT
  Age: 38 Year
  Sex: Female

DRUGS (5)
  1. GLIVEC [Suspect]
     Indication: CHRONIC MYELOID LEUKAEMIA
     Dosage: 400 MG DAILY
     Route: 048
  2. GLIVEC [Suspect]
     Dosage: 600 MG DAILY
     Route: 048
     Dates: end: 20120327
  3. GLIVEC [Suspect]
     Dosage: 200 MG, DAILY
     Route: 048
     Dates: start: 20120524
  4. GLIVEC [Suspect]
     Dosage: 600 MG, UNK
     Dates: start: 2011
  5. GLIVEC [Suspect]
     Dosage: 400 MG, DAILY

REACTIONS (9)
  - Shock [Unknown]
  - Abortion spontaneous [Recovered/Resolved]
  - Chronic myeloid leukaemia [Not Recovered/Not Resolved]
  - Pancytopenia [Recovered/Resolved]
  - Gingival bleeding [Unknown]
  - Drug ineffective [Unknown]
  - Pyrexia [Unknown]
  - Bone pain [Unknown]
  - Exposure during pregnancy [Unknown]
